FAERS Safety Report 7259524-4 (Version None)
Quarter: 2011Q1

REPORT INFORMATION
  Report Type: 
  Country: None (occurrence: None)
  Receive Date: 20110129
  Receipt Date: 20100120
  Transmission Date: 20110831
  Serious: No
  Sender: FDA-Public Use
  Company Number: US-PFIZER INC-2010010218

PATIENT
  Sex: Female
  Weight: 56.7 kg

DRUGS (5)
  1. RELPAX [Suspect]
     Indication: MIGRAINE
     Dosage: 20 MG, AS NEEDED
     Dates: start: 20090101
  2. RELPAX [Suspect]
     Dosage: 40 MG, UNK
  3. NEXIUM [Concomitant]
     Indication: GASTRIC DISORDER
     Dosage: UNK
  4. CELEBREX [Concomitant]
     Indication: ARTHRITIS
  5. ACTONEL [Concomitant]
     Indication: OSTEOPOROSIS
     Dosage: UNK

REACTIONS (2)
  - VOMITING [None]
  - DRUG INEFFECTIVE [None]
